FAERS Safety Report 7633599-2 (Version None)
Quarter: 2011Q3

REPORT INFORMATION
  Report Type: 
  Country: None (occurrence: None)
  Receive Date: 20110725
  Receipt Date: 20110708
  Transmission Date: 20111222
  Serious: Yes (Hospitalization)
  Sender: FDA-Public Use
  Company Number: US-GLAXOSMITHKLINE-A0936745A

PATIENT
  Age: 51 Year
  Sex: Female

DRUGS (3)
  1. IMITREX [Suspect]
     Route: 048
     Dates: start: 20090325
  2. IMITREX [Suspect]
     Route: 058
     Dates: start: 20090325
  3. GSK AUTOINJECTOR [Suspect]
     Route: 058
     Dates: start: 20090325

REACTIONS (1)
  - GALLBLADDER OPERATION [None]
